FAERS Safety Report 23682293 (Version 2)
Quarter: 2024Q2

REPORT INFORMATION
  Report Type: Report from Study
  Country: DE (occurrence: DE)
  Receive Date: 20240328
  Receipt Date: 20240530
  Transmission Date: 20240715
  Serious: Yes (Other)
  Sender: FDA-Public Use
  Company Number: DE-002147023-NVSC2023DE259140

PATIENT
  Sex: Male
  Weight: 75 kg

DRUGS (13)
  1. COSENTYX [Suspect]
     Active Substance: SECUKINUMAB
     Indication: Ankylosing spondylitis
     Dosage: 150 MG, ONCE/SINGLE
     Route: 065
     Dates: start: 20230222, end: 20230222
  2. COSENTYX [Suspect]
     Active Substance: SECUKINUMAB
     Dosage: 150 MG, ONCE/SINGLE
     Route: 065
     Dates: start: 20230301, end: 20230301
  3. COSENTYX [Suspect]
     Active Substance: SECUKINUMAB
     Dosage: 150 MG, ONCE/SINGLE
     Route: 065
     Dates: start: 20230308, end: 20230308
  4. COSENTYX [Suspect]
     Active Substance: SECUKINUMAB
     Dosage: 150 MG, ONCE/SINGLE
     Route: 065
     Dates: start: 20230315, end: 20230315
  5. COSENTYX [Suspect]
     Active Substance: SECUKINUMAB
     Dosage: 150 MG, ONCE/SINGLE
     Route: 065
     Dates: start: 20230721, end: 20230721
  6. COSENTYX [Suspect]
     Active Substance: SECUKINUMAB
     Dosage: 150 MG, ONCE/SINGLE
     Route: 065
     Dates: start: 20230822, end: 20230822
  7. COSENTYX [Suspect]
     Active Substance: SECUKINUMAB
     Dosage: 150 MG, ONCE/SINGLE
     Route: 065
     Dates: start: 20230916, end: 20230916
  8. COSENTYX [Suspect]
     Active Substance: SECUKINUMAB
     Dosage: 150 MG, ONCE/SINGLE
     Route: 065
     Dates: start: 20231125, end: 20231125
  9. COSENTYX [Suspect]
     Active Substance: SECUKINUMAB
     Dosage: 150 MG, ONCE/SINGLE
     Route: 065
     Dates: start: 20231223, end: 20231223
  10. VITAMIN D NOS [Concomitant]
     Active Substance: CHOLECALCIFEROL\ERGOCALCIFEROL
     Indication: Vitamin supplementation
     Dosage: 1000 IU, BIW
     Route: 048
     Dates: start: 2019
  11. OXYTETRACYCLIN PREDNISOLON [Concomitant]
     Indication: Inflammation
     Dosage: UNK UNK, BID (0.5 CENTIMETRE)
     Route: 047
     Dates: start: 20230522, end: 20230529
  12. OXYTETRACYCLIN PREDNISOLON [Concomitant]
     Dosage: UNK UNK, QD (0.5 CENTIMETRE)
     Route: 047
     Dates: start: 20230530, end: 20230609
  13. IBUPROFEN [Concomitant]
     Active Substance: IBUPROFEN
     Indication: COVID-19
     Dosage: 800 MG, BID
     Route: 048
     Dates: start: 20231102, end: 20231109

REACTIONS (4)
  - Ankylosing spondylitis [Recovered/Resolved]
  - Keratitis [Recovered/Resolved]
  - Uveitis [Recovering/Resolving]
  - Ankylosing spondylitis [Recovering/Resolving]

NARRATIVE: CASE EVENT DATE: 20231101
